FAERS Safety Report 23828495 (Version 1)
Quarter: 2024Q2

REPORT INFORMATION
  Report Type: Spontaneous
  Country: US (occurrence: US)
  Receive Date: 20240508
  Receipt Date: 20240508
  Transmission Date: 20240716
  Serious: Yes (Other)
  Sender: FDA-Public Use
  Company Number: US-GLAXOSMITHKLINE-US2024AMR056536

PATIENT

DRUGS (2)
  1. FLOVENT HFA [Suspect]
     Active Substance: FLUTICASONE PROPIONATE
     Indication: Chronic obstructive pulmonary disease
     Dosage: UNK
  2. PANTOPRAZOLE [Suspect]
     Active Substance: PANTOPRAZOLE
     Indication: Dyspepsia
     Dosage: 40 MG

REACTIONS (11)
  - Tooth extraction [Unknown]
  - Hip fracture [Unknown]
  - Joint dislocation [Unknown]
  - Pyrexia [Unknown]
  - Vitamin B12 deficiency [Unknown]
  - Fatigue [Unknown]
  - Muscular weakness [Unknown]
  - Wheelchair user [Unknown]
  - Weight decreased [Unknown]
  - Decreased appetite [Unknown]
  - Ill-defined disorder [Unknown]
